FAERS Safety Report 9246793 (Version 1)
Quarter: 2013Q2

REPORT INFORMATION
  Report Type: Spontaneous
  Country: US (occurrence: US)
  Receive Date: 20130422
  Receipt Date: 20130422
  Transmission Date: 20140414
  Serious: No
  Sender: FDA-Public Use
  Company Number: US-PFIZER INC-2013123667

PATIENT
  Age: 66 Year
  Sex: Female
  Weight: 79.37 kg

DRUGS (3)
  1. PREMARIN [Suspect]
     Indication: VULVOVAGINAL DRYNESS
     Dosage: UNK, AS NEEDED
     Route: 067
     Dates: start: 20130416
  2. LANTUS [Concomitant]
     Indication: DIABETES MELLITUS
     Dosage: 45 IU, 1X/DAY
  3. PERMETHRIN [Concomitant]
     Indication: PRURITUS GENERALISED
     Dosage: UNK
     Dates: start: 20130413, end: 201304

REACTIONS (1)
  - Vulvovaginal pruritus [Unknown]
